FAERS Safety Report 8245155-6 (Version None)
Quarter: 2012Q1

REPORT INFORMATION
  Report Type: 
  Country: None (occurrence: None)
  Receive Date: 20120329
  Receipt Date: 20120322
  Transmission Date: 20120608
  Serious: Yes (Death)
  Sender: FDA-Public Use
  Company Number: JP-AMGEN-JPNSP2012004924

PATIENT
  Age: 46 Year
  Sex: Male

DRUGS (5)
  1. ROMIPLOSTIM [Suspect]
     Indication: ADENOCARCINOMA
     Dosage: 50 MUG/KG, QD
     Dates: start: 20110917, end: 20110917
  2. MORPHINE [Concomitant]
     Indication: ADENOCARCINOMA
     Route: 065
     Dates: start: 20110721
  3. FLURBIPROFEN [Concomitant]
     Dosage: 50 MG, UNK
     Route: 041
     Dates: start: 20110701, end: 20110901
  4. SANDOSTATIN [Concomitant]
     Indication: ADENOCARCINOMA
     Dosage: 300 MUG, UNK
     Route: 058
     Dates: start: 20110721
  5. GRAN [Concomitant]
     Indication: ADENOCARCINOMA
     Route: 065
     Dates: start: 20110721

REACTIONS (1)
  - MULTI-ORGAN FAILURE [None]
